FAERS Safety Report 5117646-8 (Version None)
Quarter: 2006Q3

REPORT INFORMATION
  Report Type: 
  Country: None (occurrence: None)
  Receive Date: 20060926
  Receipt Date: 20060907
  Transmission Date: 20061208
  Serious: Yes (Other)
  Sender: FDA-Public Use
  Company Number: IT200607002028

PATIENT
  Age: 62 Year
  Sex: Male

DRUGS (2)
  1. CIALIS [Suspect]
     Indication: ERECTILE DYSFUNCTION
     Dosage: 20 MG, OTHER, ORAL
     Route: 048
     Dates: start: 20060630, end: 20060630
  2. ALFUZOSIN         (ALFUZOSIN) [Concomitant]

REACTIONS (3)
  - AMAUROSIS FUGAX [None]
  - BLOOD CHOLESTEROL INCREASED [None]
  - PROSTATIC SPECIFIC ANTIGEN INCREASED [None]
